FAERS Safety Report 19421327 (Version 1)
Quarter: 2021Q2

REPORT INFORMATION
  Report Type: Spontaneous
  Country: CH (occurrence: CH)
  Receive Date: 20210615
  Receipt Date: 20210615
  Transmission Date: 20210717
  Serious: Yes (Death, Other)
  Sender: FDA-Public Use
  Company Number: CH-KYOWAKIRIN-2021BKK010501

PATIENT

DRUGS (1)
  1. POTELIGEO [Suspect]
     Active Substance: MOGAMULIZUMAB-KPKC
     Indication: HEREDITARY HYPOPHOSPHATAEMIC RICKETS
     Dosage: 20 MG ONCE
     Route: 065
     Dates: start: 20210414, end: 20210414

REACTIONS (2)
  - Sudden death [Fatal]
  - Product use in unapproved indication [Recovered/Resolved]

NARRATIVE: CASE EVENT DATE: 20210414
